FAERS Safety Report 4333373-9 (Version None)
Quarter: 2004Q2

REPORT INFORMATION
  Report Type: 
  Country: None (occurrence: None)
  Receive Date: 20040401
  Receipt Date: 20040324
  Transmission Date: 20050107
  Serious: Yes (Hospitalization)
  Sender: FDA-Public Use
  Company Number: HQWYE095625MAR04

PATIENT
  Age: 58 Year
  Sex: Female
  Weight: 91.17 kg

DRUGS (14)
  1. RAPAMUNE [Suspect]
     Indication: PROPHYLAXIS AGAINST TRANSPLANT REJECTION
     Dosage: 2 MG 1 X PER 1 DAY, ORAL
     Route: 048
  2. PROGRAF [Concomitant]
  3. PREDNISONE [Concomitant]
  4. IRON (IRON) [Concomitant]
  5. MYCELEX [Concomitant]
  6. BACTRIM [Concomitant]
  7. VALCYTE [Concomitant]
  8. COLACE (DOCUSATE SODIUM) [Concomitant]
  9. LOPRESSOR [Concomitant]
  10. PRQCARDIA (NIFEDIPINE) [Concomitant]
  11. PROTONIX [Concomitant]
  12. ZOCOR [Concomitant]
  13. INSULIN [Concomitant]
  14. ASPIRIN [Concomitant]

REACTIONS (2)
  - PNEUMONIA [None]
  - PULMONARY HYPERTENSION [None]
